FAERS Safety Report 18726229 (Version 1)
Quarter: 2021Q1

REPORT INFORMATION
  Report Type: Spontaneous
  Country: US (occurrence: US)
  Receive Date: 20210111
  Receipt Date: 20210111
  Transmission Date: 20210419
  Serious: Yes (Other)
  Sender: FDA-Public Use
  Company Number: US-009507513-2101USA003763

PATIENT
  Sex: Female

DRUGS (58)
  1. IMITREX [Suspect]
     Active Substance: SUMATRIPTAN SUCCINATE
     Dosage: 6 MILLIGRAM, FREQEUNCY :UNKNOWN
     Route: 065
  2. ASPIRIN. [Suspect]
     Active Substance: ASPIRIN
     Dosage: UNK
  3. MOTRIN [Suspect]
     Active Substance: IBUPROFEN
     Dosage: UNK
  4. NEURONTIN [Suspect]
     Active Substance: GABAPENTIN
     Dosage: UNK
  5. ERGOTRATE [Suspect]
     Active Substance: ERGONOVINE MALEATE
     Dosage: UNK
  6. NAPROXEN. [Suspect]
     Active Substance: NAPROXEN
     Dosage: UNK
  7. PROCHLORPERAZINE. [Suspect]
     Active Substance: PROCHLORPERAZINE
     Dosage: UNK
  8. YAZ [Suspect]
     Active Substance: DROSPIRENONE\ETHINYL ESTRADIOL
     Dosage: UNK
  9. MAXALT [Suspect]
     Active Substance: RIZATRIPTAN BENZOATE
     Dosage: UNK
  10. SUMATRIPTAN. [Suspect]
     Active Substance: SUMATRIPTAN
     Indication: MIGRAINE
     Dosage: 6 MILLIGRAM, FREQUENCY OF PRODUCT: UNKNOWN
     Route: 065
  11. FLONASE [Suspect]
     Active Substance: FLUTICASONE PROPIONATE
     Indication: PRODUCT USED FOR UNKNOWN INDICATION
     Dosage: UNK
     Route: 065
  12. MAGNESIUM (UNSPECIFIED) [Suspect]
     Active Substance: MAGNESIUM
     Dosage: UNK
  13. GINKGO [Suspect]
     Active Substance: GINKGO
     Dosage: UNK
  14. VITAMIN B (UNSPECIFIED) [Suspect]
     Active Substance: VITAMIN B
     Dosage: UNK
  15. VERAPAMIL [Suspect]
     Active Substance: VERAPAMIL HYDROCHLORIDE
     Dosage: UNK
  16. TOPAMAX [Suspect]
     Active Substance: TOPIRAMATE
     Dosage: UNK
  17. DEPAKOTE [Suspect]
     Active Substance: DIVALPROEX SODIUM
     Dosage: UNK
  18. PHENERGAN [Suspect]
     Active Substance: PROMETHAZINE HYDROCHLORIDE
     Dosage: UNK
  19. ALLEGRA [Suspect]
     Active Substance: FEXOFENADINE HYDROCHLORIDE
     Dosage: UNK
  20. FIORICET WITH CODEINE [Concomitant]
     Active Substance: ACETAMINOPHEN\BUTALBITAL\CAFFEINE\CODEINE PHOSPHATE
     Dosage: UNK
  21. ADVIL [Suspect]
     Active Substance: IBUPROFEN
     Dosage: UNK
  22. TYLENOL [Suspect]
     Active Substance: ACETAMINOPHEN
     Dosage: UNK
  23. NIACIN. [Suspect]
     Active Substance: NIACIN
     Dosage: UNK
  24. RELPAX [Suspect]
     Active Substance: ELETRIPTAN HYDROBROMIDE
     Dosage: UNK
  25. ZOMIG [Suspect]
     Active Substance: ZOLMITRIPTAN
     Dosage: UNK
  26. AUROTO OTIC [Suspect]
     Active Substance: ANTIPYRINE\BENZOCAINE
     Dosage: UNK
  27. YASMIN [Suspect]
     Active Substance: DROSPIRENONE\ETHINYL ESTRADIOL
     Dosage: UNK
  28. CYMBALTA [Suspect]
     Active Substance: DULOXETINE HYDROCHLORIDE
     Dosage: UNK
  29. ALEVE [Suspect]
     Active Substance: NAPROXEN SODIUM
     Dosage: UNK
  30. UBIDECARENONE. [Suspect]
     Active Substance: UBIDECARENONE
     Dosage: UNK
  31. FROVA [Suspect]
     Active Substance: FROVATRIPTAN SUCCINATE
     Dosage: UNK
  32. SEROQUEL [Suspect]
     Active Substance: QUETIAPINE FUMARATE
     Dosage: UNK
  33. MIDRIN [Suspect]
     Active Substance: ACETAMINOPHEN\DICHLORALPHENAZONE\ISOMETHEPTENE
     Dosage: UNK
  34. AMBIEN [Suspect]
     Active Substance: ZOLPIDEM TARTRATE
     Dosage: UNK
  35. AMITRIPTYLINE HYDROCHLORIDE. [Suspect]
     Active Substance: AMITRIPTYLINE HYDROCHLORIDE
     Dosage: UNK
  36. [COMPOSITION UNSPECIFIED] [Suspect]
     Active Substance: UNSPECIFIED INGREDIENT
     Dosage: UNK
  37. OPIATO [ATROPINE SULFATE\OPIUM] [Suspect]
     Active Substance: ATROPINE SULFATE\OPIUM
     Dosage: UNK
  38. SUMATRIPTAN. [Suspect]
     Active Substance: SUMATRIPTAN
     Indication: MIGRAINE
     Dosage: 100 MG TABLETS, UNKNOWN DOSING
     Route: 065
     Dates: start: 2013
  39. SUMATRIPTAN. [Suspect]
     Active Substance: SUMATRIPTAN
     Indication: MIGRAINE
     Dosage: 6 MILLIGRAM, FREQUENCY: UNKNOWN. FORMULATION: SOLUTION FOR INJECTION IN PREFILLED SYRINGE
     Route: 065
  40. AMERGE [Suspect]
     Active Substance: NARATRIPTAN HYDROCHLORIDE
     Dosage: UNK
  41. BUPROPION. [Suspect]
     Active Substance: BUPROPION
     Dosage: UNK
  42. FEVERFEW [Suspect]
     Active Substance: FEVERFEW
     Dosage: UNK
  43. GINGER. [Suspect]
     Active Substance: GINGER
     Dosage: UNK
  44. ERGONOVINE MALEATE. [Suspect]
     Active Substance: ERGONOVINE MALEATE
     Dosage: UNK
  45. DIHYDROERGOTAMINE MESYLATE. [Suspect]
     Active Substance: DIHYDROERGOTAMINE MESYLATE
     Dosage: UNK
  46. NAPROSYN [Suspect]
     Active Substance: NAPROXEN
     Dosage: UNK
  47. PROMETHAZINE [Suspect]
     Active Substance: PROMETHAZINE HYDROCHLORIDE
     Dosage: UNK
  48. ZOLOFT [Suspect]
     Active Substance: SERTRALINE HYDROCHLORIDE
     Dosage: UNK
  49. CEPHALEXIN. [Suspect]
     Active Substance: CEPHALEXIN
     Dosage: UNK
  50. NUVARING [Suspect]
     Active Substance: ETHINYL ESTRADIOL\ETONOGESTREL
     Dosage: UNK
  51. IMITREX [Suspect]
     Active Substance: SUMATRIPTAN SUCCINATE
     Dosage: 100 MILLIGRAM, FREQUENY: UNKNOWN
     Route: 065
  52. EXCEDRIN MIGRAINE [Suspect]
     Active Substance: ACETAMINOPHEN\ASPIRIN\CAFFEINE
     Dosage: UNK
  53. MIGRANAL [Suspect]
     Active Substance: DIHYDROERGOTAMINE MESYLATE
     Dosage: UNK
  54. MAXALT?MLT [Suspect]
     Active Substance: RIZATRIPTAN BENZOATE
     Dosage: UNK
  55. LAMICTAL [Suspect]
     Active Substance: LAMOTRIGINE
     Indication: PRODUCT USED FOR UNKNOWN INDICATION
     Dosage: UNK
     Route: 065
  56. CAFERGOT [Suspect]
     Active Substance: CAFFEINE\ERGOTAMINE TARTRATE
     Dosage: UNK
  57. LORAZEPAM. [Suspect]
     Active Substance: LORAZEPAM
     Dosage: UNK
  58. ZYRTEC?D [Suspect]
     Active Substance: CETIRIZINE HYDROCHLORIDE\PSEUDOEPHEDRINE HYDROCHLORIDE
     Dosage: UNK

REACTIONS (19)
  - Abdominal pain upper [Unknown]
  - Tinnitus [Unknown]
  - Tremor [Unknown]
  - Cognitive disorder [Unknown]
  - Anxiety [Unknown]
  - Rash [Unknown]
  - Therapeutic response decreased [Unknown]
  - Feeling of despair [Unknown]
  - Dyspnoea [Unknown]
  - Suicidal ideation [Unknown]
  - Parosmia [Unknown]
  - Throat tightness [Unknown]
  - Seizure [Unknown]
  - Migraine [Unknown]
  - Disturbance in attention [Unknown]
  - Memory impairment [Unknown]
  - Chest discomfort [Unknown]
  - Panic attack [Unknown]
  - Drug ineffective [Unknown]
